FAERS Safety Report 15249768 (Version 3)
Quarter: 2018Q4

REPORT INFORMATION
  Report Type: Report from Study
  Country: PL (occurrence: PL)
  Receive Date: 20180807
  Receipt Date: 20181029
  Transmission Date: 20190204
  Serious: Yes (Other)
  Sender: FDA-Public Use
  Company Number: PL-CHIESI USA INC.-PL-2018CHI000194

PATIENT
  Age: 0 Day
  Sex: Female
  Weight: 1.34 kg

DRUGS (3)
  1. CAFFEINE CITRATE. [Concomitant]
     Active Substance: CAFFEINE CITRATE
     Indication: PRODUCT USED FOR UNKNOWN INDICATION
     Dosage: UNK
     Dates: start: 20180628, end: 20180814
  2. CUROSURF [Suspect]
     Active Substance: PORACTANT ALFA
     Dosage: 1.5 ML, SINGLE
     Route: 039
     Dates: start: 20180629, end: 20180629
  3. CUROSURF [Suspect]
     Active Substance: PORACTANT ALFA
     Indication: NEONATAL RESPIRATORY DISTRESS SYNDROME
     Dosage: 1.5 ML, SINGLE
     Route: 039
     Dates: start: 20180628, end: 20180628

REACTIONS (2)
  - Inappropriate schedule of product administration [Recovered/Resolved]
  - Neonatal hypoxia [Recovered/Resolved]

NARRATIVE: CASE EVENT DATE: 20180628
